FAERS Safety Report 5754880-8 (Version None)
Quarter: 2008Q2

REPORT INFORMATION
  Report Type: 
  Country: None (occurrence: None)
  Receive Date: 20080527
  Receipt Date: 20080512
  Transmission Date: 20081010
  Serious: Yes (Hospitalization)
  Sender: FDA-Public Use
  Company Number: SPV1-2008-01075

PATIENT
  Sex: Female

DRUGS (1)
  1. ADDERALL XR 30 [Suspect]
     Dosage: 1X/DAY:QD, ORAL
     Route: 048

REACTIONS (1)
  - APPENDIX DISORDER [None]
